FAERS Safety Report 21374254 (Version 1)
Quarter: 2022Q3

REPORT INFORMATION
  Report Type: Report from Study
  Country: US (occurrence: US)
  Receive Date: 20220926
  Receipt Date: 20220926
  Transmission Date: 20221027
  Serious: Yes (Hospitalization, Other)
  Sender: FDA-Public Use
  Company Number: US-ABBVIE-4130169

PATIENT
  Sex: Male

DRUGS (1)
  1. IMBRUVICA [Suspect]
     Active Substance: IBRUTINIB
     Indication: B-cell lymphoma
     Route: 048

REACTIONS (7)
  - Dehydration [Unknown]
  - Regional chemotherapy [Unknown]
  - Fatigue [Unknown]
  - Depression [Unknown]
  - Confusional state [Unknown]
  - Decreased appetite [Unknown]
  - Hypersomnia [Unknown]
